FAERS Safety Report 23484628 (Version 8)
Quarter: 2025Q2

REPORT INFORMATION
  Report Type: Report from Study
  Country: CA (occurrence: CA)
  Receive Date: 20240206
  Receipt Date: 20250630
  Transmission Date: 20250716
  Serious: Yes (Other)
  Sender: TAKEDA
  Company Number: CA-TAKEDA-2024TUS008233

PATIENT
  Sex: Male
  Weight: 82 kg

DRUGS (2)
  1. VEDOLIZUMAB [Suspect]
     Active Substance: VEDOLIZUMAB
     Indication: Colitis ulcerative
  2. VEDOLIZUMAB [Suspect]
     Active Substance: VEDOLIZUMAB
     Indication: Colitis ulcerative
     Dosage: 108 MILLIGRAM, Q2WEEKS

REACTIONS (11)
  - Bipolar disorder [Unknown]
  - Pneumonia [Unknown]
  - General physical health deterioration [Unknown]
  - Injection site pain [Unknown]
  - Device malfunction [Unknown]
  - Device leakage [Unknown]
  - Product temperature excursion issue [Unknown]
  - Product dose omission issue [Unknown]
  - Haemorrhoids [Unknown]
  - Pharyngitis [Unknown]
  - Sinusitis [Unknown]
